FAERS Safety Report 5199213-3 (Version None)
Quarter: 2006Q4

REPORT INFORMATION
  Report Type: 
  Country: None (occurrence: None)
  Receive Date: 20061229
  Receipt Date: 20061214
  Transmission Date: 20070319
  Serious: Yes (Hospitalization)
  Sender: FDA-Public Use
  Company Number: JPI-P-000213

PATIENT
  Sex: Male

DRUGS (4)
  1. XYREM [Suspect]
     Dosage: SEE IMAGE
     Route: 048
  2. ATIVAN [Concomitant]
  3. OXYCONTIN [Concomitant]
  4. AMBIEN [Concomitant]

REACTIONS (4)
  - FALL [None]
  - HALLUCINATION [None]
  - INJURY [None]
  - RHABDOMYOLYSIS [None]
